FAERS Safety Report 7180221-8 (Version None)
Quarter: 2010Q4

REPORT INFORMATION
  Report Type: 
  Country: None (occurrence: None)
  Receive Date: 20101221
  Receipt Date: 20101220
  Transmission Date: 20110411
  Serious: Yes (Other)
  Sender: FDA-Public Use
  Company Number: US-CEPHALON-2010006102

PATIENT
  Sex: Female
  Weight: 72 kg

DRUGS (4)
  1. NUVIGIL [Suspect]
     Indication: NARCOLEPSY
     Route: 048
     Dates: start: 20101110, end: 20101122
  2. FORADIL [Concomitant]
     Indication: ASTHMA
     Dates: start: 20091101
  3. FLOVENT [Concomitant]
     Indication: ASTHMA
  4. XOPENEX [Concomitant]
     Indication: ASTHMA
     Dates: start: 20070101

REACTIONS (7)
  - CHAPPED LIPS [None]
  - ERYTHEMA [None]
  - EYE OEDEMA [None]
  - EYELID OEDEMA [None]
  - RASH [None]
  - SKIN EXFOLIATION [None]
  - SWELLING FACE [None]
